FAERS Safety Report 6125415-5 (Version None)
Quarter: 2009Q1

REPORT INFORMATION
  Report Type: 
  Country: None (occurrence: None)
  Receive Date: 20090319
  Receipt Date: 20090319
  Transmission Date: 20090719
  Serious: Yes (Life-Threatening, Hospitalization)
  Sender: FDA-Public Use
  Company Number: None

PATIENT
  Age: 39 Year
  Sex: Female
  Weight: 55.7924 kg

DRUGS (2)
  1. FENTANYL-25 [Suspect]
     Indication: WHIPLASH INJURY
     Dosage: 1 PATCH EVERY OTHER DAY TRANSDERMAL
     Route: 062
     Dates: start: 20070701, end: 20071101
  2. FENTANYL-50 [Suspect]
     Dosage: 1 PATCH EVERY OTHER DAY TRANSDERMAL
     Route: 062
     Dates: start: 20071101, end: 20071201

REACTIONS (7)
  - CONFUSIONAL STATE [None]
  - DISORIENTATION [None]
  - DYSARTHRIA [None]
  - HALLUCINATION [None]
  - OVERDOSE [None]
  - PAIN IN EXTREMITY [None]
  - RENAL FAILURE [None]
